FAERS Safety Report 18299367 (Version 1)
Quarter: 2020Q3

REPORT INFORMATION
  Report Type: Spontaneous
  Country: US (occurrence: US)
  Receive Date: 20200922
  Receipt Date: 20200922
  Transmission Date: 20201103
  Serious: Yes (Other)
  Sender: FDA-Public Use
  Company Number: US-INCYTE CORPORATION-2020IN008978

PATIENT

DRUGS (1)
  1. JAKAFI [Suspect]
     Active Substance: RUXOLITINIB
     Indication: DERMATITIS ATOPIC
     Route: 065

REACTIONS (4)
  - Neutropenia [Recovering/Resolving]
  - Off label use [Unknown]
  - Product use issue [Unknown]
  - Leukopenia [Recovering/Resolving]
